FAERS Safety Report 6053141-X (Version None)
Quarter: 2009Q1

REPORT INFORMATION
  Report Type: 
  Country: None (occurrence: None)
  Receive Date: 20090127
  Receipt Date: 20090116
  Transmission Date: 20090719
  Serious: Yes (Other)
  Sender: FDA-Public Use
  Company Number: CH-WYE-G02839708

PATIENT
  Age: 39 Year
  Sex: Female

DRUGS (4)
  1. EFFEXOR [Suspect]
     Indication: DEPRESSION
     Route: 048
     Dates: start: 20080925, end: 20081005
  2. EFFEXOR [Interacting]
     Route: 048
     Dates: start: 20081022, end: 20081115
  3. ANXIOLIT [Concomitant]
     Indication: ANXIETY
     Dosage: ONCE DAILY AS NEEDED
     Route: 048
  4. DEANXIT [Interacting]
     Indication: DEPRESSION
     Dosage: DOSE UNKNOWN ONCE-TWICE DAILY
     Route: 048

REACTIONS (3)
  - ANXIETY [None]
  - CONDITION AGGRAVATED [None]
  - DRUG INTERACTION [None]
